FAERS Safety Report 14855943 (Version 21)
Quarter: 2020Q2

REPORT INFORMATION
  Report Type: Report from Study
  Country: US (occurrence: US)
  Receive Date: 20180507
  Receipt Date: 20200501
  Transmission Date: 20200713
  Serious: Yes (Hospitalization, Other)
  Sender: FDA-Public Use
  Company Number: US-ACTELION-A-NJ2018-171703

PATIENT
  Age: 53 Year
  Sex: Female
  Weight: 77.55 kg

DRUGS (26)
  1. POTASSIUM [Suspect]
     Active Substance: POTASSIUM
     Indication: PRODUCT USED FOR UNKNOWN INDICATION
     Route: 065
  2. METOPROLOL TARTRATE. [Concomitant]
     Active Substance: METOPROLOL TARTRATE
     Dosage: 25 MG, BID
  3. MYCOPHENOLATE MOFETIL. [Concomitant]
     Active Substance: MYCOPHENOLATE MOFETIL
     Dosage: 250 MG, UNK
  4. PROVENTIL HFA [Concomitant]
     Active Substance: ALBUTEROL SULFATE
     Indication: DYSPNOEA
     Dosage: 90 MCG; 2 PUFFS EVERY 6 HOURS
     Route: 055
  5. PANTOPRAZOLE SODIUM. [Concomitant]
     Active Substance: PANTOPRAZOLE SODIUM
     Dosage: 40 MG, QD
     Route: 048
  6. UPTRAVI [Suspect]
     Active Substance: SELEXIPAG
     Dosage: 800 MCG, BID
     Route: 048
     Dates: start: 2018
  7. LETAIRIS [Concomitant]
     Active Substance: AMBRISENTAN
     Dosage: 10 MG
  8. BUMETANIDE. [Concomitant]
     Active Substance: BUMETANIDE
     Dosage: 2 MG, BID
     Route: 048
  9. CYCLOBENZAPRINE. [Concomitant]
     Active Substance: CYCLOBENZAPRINE
     Indication: MUSCLE SPASMS
     Dosage: 5 MG, TID  PRN
     Route: 048
  10. SUCRALFATE. [Concomitant]
     Active Substance: SUCRALFATE
     Dosage: 1 G, QID BEFORE MEALS AND NIGHTLY
  11. THEOPHYLLINE ANHYDROUS. [Concomitant]
     Active Substance: THEOPHYLLINE ANHYDROUS
     Dosage: 100 MG, QD
     Route: 048
  12. UPTRAVI [Suspect]
     Active Substance: SELEXIPAG
     Dosage: 200 MCG, BID
     Route: 048
  13. METOLAZONE. [Concomitant]
     Active Substance: METOLAZONE
     Dosage: 2.5 MG 30 MINUTES BEFORE BUMETADINE
  14. PREDNISONE. [Concomitant]
     Active Substance: PREDNISONE
     Dosage: TAPERING DOSE
     Route: 048
  15. SILDENAFIL CITRATE. [Concomitant]
     Active Substance: SILDENAFIL CITRATE
  16. OPSUMIT [Suspect]
     Active Substance: MACITENTAN
     Indication: PULMONARY ARTERIAL HYPERTENSION
     Dosage: 10 MG, QD
     Route: 048
     Dates: start: 20171010, end: 20200115
  17. ALBUTEROL. [Concomitant]
     Active Substance: ALBUTEROL
     Indication: WHEEZING
     Dosage: 5 MG/ML, 2.5 MG BY NEBULIZER Q6 PRN
  18. LOPRESSOR [Concomitant]
     Active Substance: METOPROLOL TARTRATE
     Dosage: 25 MG, BID
  19. BUDESONIDE W/FORMOTEROL [Concomitant]
     Active Substance: BUDESONIDE\FORMOTEROL
     Dosage: 160-4.5 MCG/ACTUATION, INHALE 2 PUFFS ONE TIME EACH DAY
  20. POTASSIUM CHLORIDE. [Concomitant]
     Active Substance: POTASSIUM CHLORIDE
     Dosage: 20 MEQ, QD
     Route: 048
  21. UPTRAVI [Suspect]
     Active Substance: SELEXIPAG
     Dosage: UNK
     Route: 048
     Dates: start: 20171211
  22. LASIX [Concomitant]
     Active Substance: FUROSEMIDE
     Dosage: 60 MG, QD
  23. LASIX [Concomitant]
     Active Substance: FUROSEMIDE
     Indication: FLUID RETENTION
     Dosage: 40 MG, QD
  24. UPTRAVI [Suspect]
     Active Substance: SELEXIPAG
     Indication: PULMONARY ARTERIAL HYPERTENSION
     Dosage: 1600 MCG, BID
     Route: 048
     Dates: start: 2018
  25. ADCIRCA [Concomitant]
     Active Substance: TADALAFIL
  26. SEROQUEL [Concomitant]
     Active Substance: QUETIAPINE FUMARATE

REACTIONS (29)
  - Lung disorder [Unknown]
  - Upper gastrointestinal haemorrhage [Recovered/Resolved]
  - Intestinal obstruction [Recovered/Resolved]
  - Enterocolitis [Recovered/Resolved]
  - Viral infection [Unknown]
  - Pneumonia [Unknown]
  - Cardiac failure acute [Recovered/Resolved]
  - Cardiac failure congestive [Unknown]
  - Fluid retention [Unknown]
  - Oedema peripheral [Recovered/Resolved]
  - Respiratory disorder [Unknown]
  - Oesophagitis [Unknown]
  - Cardiomyopathy [Unknown]
  - Constipation [Recovered/Resolved]
  - Weight decreased [Recovered/Resolved]
  - Oxygen saturation decreased [Recovering/Resolving]
  - Packed red blood cell transfusion [Unknown]
  - Chest pain [Recovered/Resolved]
  - Eating disorder [Recovered/Resolved]
  - Haemoglobin decreased [Unknown]
  - Acute kidney injury [Recovered/Resolved]
  - Hospitalisation [Unknown]
  - Vomiting [Recovered/Resolved]
  - Dyspnoea [Recovered/Resolved]
  - Malaise [Unknown]
  - Abdominal pain [Recovered/Resolved]
  - Nausea [Unknown]
  - Hypertension [Unknown]
  - Weight increased [Recovered/Resolved]

NARRATIVE: CASE EVENT DATE: 20180406
